FAERS Safety Report 4610539-1 (Version None)
Quarter: 2005Q1

REPORT INFORMATION
  Report Type: 
  Country: None (occurrence: None)
  Receive Date: 20050316
  Receipt Date: 20050304
  Transmission Date: 20050727
  Serious: Yes (Hospitalization)
  Sender: FDA-Public Use
  Company Number: 2005040510

PATIENT

DRUGS (1)
  1. ROLAIDS SOFT CHEWS VANILLA CREME (CALCIUM CARBONATE) [Suspect]
     Dosage: ONE CHEW ONCE, ORAL
     Route: 048

REACTIONS (1)
  - FEELING ABNORMAL [None]
